FAERS Safety Report 9223318 (Version 1)
Quarter: 2013Q2

REPORT INFORMATION
  Report Type: Spontaneous
  Country: NL (occurrence: NL)
  Receive Date: 20130410
  Receipt Date: 20130410
  Transmission Date: 20140414
  Serious: Yes (Death)
  Sender: FDA-Public Use
  Company Number: NL-BAXTER-2013BAX013560

PATIENT
  Sex: Female

DRUGS (6)
  1. ENDOXAN I.V., POEDER VOOR OPLOSSING VOOR INJECTIE 200, 500, 1000 MG [Suspect]
     Indication: GESTATIONAL TROPHOBLASTIC TUMOUR
     Dosage: ON DAY 8
     Route: 042
  2. ETOPOSIDE [Suspect]
     Indication: GESTATIONAL TROPHOBLASTIC TUMOUR
     Dosage: ON DAYS 1-2
     Route: 042
  3. METHOTREXATE [Suspect]
     Indication: GESTATIONAL TROPHOBLASTIC TUMOUR
     Dosage: ON DAY 1
     Route: 042
  4. ACTINOMYCIN D [Suspect]
     Indication: GESTATIONAL TROPHOBLASTIC TUMOUR
     Dosage: ON DAY 1
     Route: 040
  5. ACTINOMYCIN D [Suspect]
     Dosage: ON DAY 2
     Route: 040
  6. VINCRISTINE [Suspect]
     Indication: GESTATIONAL TROPHOBLASTIC TUMOUR
     Dosage: ON DAY 8
     Route: 042

REACTIONS (1)
  - Plasma cell myeloma [Fatal]
